FAERS Safety Report 10472169 (Version 1)
Quarter: 2014Q3

REPORT INFORMATION
  Report Type: Spontaneous
  Country: US (occurrence: None)
  Receive Date: 20140923
  Receipt Date: 20140923
  Transmission Date: 20150326
  Serious: Yes (Hospitalization)
  Sender: FDA-Public Use
  Company Number: None

PATIENT
  Age: 20 Year
  Sex: Female
  Weight: 68.4 kg

DRUGS (5)
  1. SAPHRIS [Suspect]
     Active Substance: ASENAPINE MALEATE
     Indication: BIPOLAR DISORDER
     Route: 048
     Dates: start: 20140820, end: 20140905
  2. SAPHRIS [Suspect]
     Active Substance: ASENAPINE MALEATE
     Indication: INSOMNIA
     Route: 048
     Dates: start: 20140820, end: 20140905
  3. TRAZODONE [Concomitant]
     Active Substance: TRAZODONE HYDROCHLORIDE
  4. WELLBUTRIN [Concomitant]
     Active Substance: BUPROPION HYDROCHLORIDE
  5. LAMICTAL [Suspect]
     Active Substance: LAMOTRIGINE
     Indication: BIPOLAR DISORDER
     Route: 048
     Dates: start: 2012

REACTIONS (9)
  - Rash [None]
  - Stomatitis [None]
  - Erythema [None]
  - Urticaria [None]
  - Blister [None]
  - Speech disorder [None]
  - Treatment noncompliance [None]
  - Swollen tongue [None]
  - Dysphagia [None]

NARRATIVE: CASE EVENT DATE: 20140912
